FAERS Safety Report 26175541 (Version 1)
Quarter: 2025Q4

REPORT INFORMATION
  Report Type: Spontaneous
  Country: CN (occurrence: CN)
  Receive Date: 20251218
  Receipt Date: 20251218
  Transmission Date: 20260117
  Serious: Yes (Other)
  Sender: NOVARTIS
  Company Number: CN-002147023-NVSC2025CN192779

PATIENT
  Age: 73 Year
  Sex: Female
  Weight: 61 kg

DRUGS (2)
  1. ENTRESTO [Suspect]
     Active Substance: SACUBITRIL\VALSARTAN
     Indication: Hypertension
     Dosage: 50 MG, BID
     Route: 048
     Dates: start: 20251107, end: 20251108
  2. BISOPROLOL [Suspect]
     Active Substance: BISOPROLOL
     Indication: Heart rate irregular
     Dosage: 5 MG, QD
     Route: 048
     Dates: start: 20251030, end: 20251108

REACTIONS (10)
  - Pneumonitis [Unknown]
  - Left ventricular failure [Unknown]
  - Tricuspid valve incompetence [Unknown]
  - Condition aggravated [Unknown]
  - Blood pressure decreased [Recovering/Resolving]
  - Pleural effusion [Unknown]
  - Atelectasis [Unknown]
  - Oedema peripheral [Unknown]
  - Chest discomfort [Unknown]
  - Asthenia [Unknown]

NARRATIVE: CASE EVENT DATE: 20251108
